FAERS Safety Report 14604352 (Version 1)
Quarter: 2018Q1

REPORT INFORMATION
  Report Type: Spontaneous
  Country: US (occurrence: US)
  Receive Date: 20180306
  Receipt Date: 20180306
  Transmission Date: 20180509
  Serious: Yes (Hospitalization)
  Sender: FDA-Public Use
  Company Number: US-ASTRAZENECA-2018SE25997

PATIENT
  Age: 739 Month
  Sex: Female
  Weight: 42.2 kg

DRUGS (1)
  1. FASLODEX [Suspect]
     Active Substance: FULVESTRANT
     Dosage: ONE INJECTION TO EACH BUTTOCK EVERY TWO WEEKS FOR THE FIRST THREE DOSES
     Route: 030
     Dates: start: 201801

REACTIONS (8)
  - Laboratory test abnormal [Unknown]
  - Hypoaesthesia [Unknown]
  - Hypokinesia [Unknown]
  - Injection site discomfort [Recovered/Resolved]
  - Gait disturbance [Not Recovered/Not Resolved]
  - Upper limb fracture [Unknown]
  - Muscular weakness [Unknown]
  - Pain in extremity [Not Recovered/Not Resolved]

NARRATIVE: CASE EVENT DATE: 201801
